FAERS Safety Report 5672831-1 (Version None)
Quarter: 2008Q1

REPORT INFORMATION
  Report Type: 
  Country: None (occurrence: None)
  Receive Date: 20080317
  Receipt Date: 20080307
  Transmission Date: 20080703
  Serious: Yes (Other)
  Sender: FDA-Public Use
  Company Number: B0510163A

PATIENT
  Age: 15 Year
  Sex: 0

DRUGS (8)
  1. MELPHALAN (FORMULATION UNKNOWN) (GENERIC) (MELPHALAN) [Suspect]
     Indication: ACUTE MYELOID LEUKAEMIA
  2. STEM CELL TRANSPLANT [Concomitant]
  3. ETOPOSIDE [Concomitant]
  4. CYTARABINE [Concomitant]
  5. RADIOTHERAPY [Concomitant]
  6. THIOTEPA [Concomitant]
  7. CYCLOPHOSPHAMIDE [Concomitant]
  8. TACROLIMUS [Concomitant]

REACTIONS (6)
  - ADENOVIRUS INFECTION [None]
  - COMPLICATIONS OF BONE MARROW TRANSPLANT [None]
  - CYSTITIS HAEMORRHAGIC [None]
  - INFECTION [None]
  - REFRACTORY ANAEMIA [None]
  - STEM CELL TRANSPLANT [None]
